FAERS Safety Report 13401206 (Version 1)
Quarter: 2017Q2

REPORT INFORMATION
  Report Type: Spontaneous
  Country: FR (occurrence: FR)
  Receive Date: 20170404
  Receipt Date: 20170404
  Transmission Date: 20170830
  Serious: Yes (Hospitalization)
  Sender: FDA-Public Use
  Company Number: FR-TEVA-756517ROM

PATIENT
  Age: 32 Year
  Sex: Male

DRUGS (12)
  1. NIVESTIM [Concomitant]
     Active Substance: FILGRASTIM
     Dates: start: 20161119, end: 20161129
  2. EMEND [Concomitant]
     Active Substance: APREPITANT
     Dates: start: 20161114, end: 20161116
  3. ZELITREX [Suspect]
     Active Substance: VALACYCLOVIR HYDROCHLORIDE
     Indication: ANTIVIRAL PROPHYLAXIS
     Dosage: 1000 MILLIGRAM DAILY;
     Route: 048
     Dates: start: 20161113, end: 20161126
  4. XANAX [Concomitant]
     Active Substance: ALPRAZOLAM
     Dates: start: 20161114, end: 20161130
  5. PLITICAN [Concomitant]
     Active Substance: ALIZAPRIDE HYDROCHLORIDE
     Dates: start: 20161114, end: 20161120
  6. CARBOPLATINE ACCORD [Suspect]
     Active Substance: CARBOPLATIN
     Dosage: 1172 MILLIGRAM DAILY;
     Route: 041
     Dates: start: 20161116, end: 20161116
  7. VANCOMYCIN [Suspect]
     Active Substance: VANCOMYCIN
     Indication: INFECTION
     Dates: start: 20161123, end: 20161127
  8. DOLOSAL [Suspect]
     Active Substance: MEPERIDINE HYDROCHLORIDE
     Indication: MUCOSAL INFLAMMATION
     Dates: start: 20161123, end: 20161127
  9. CARBOPLATINE ACCORD [Suspect]
     Active Substance: CARBOPLATIN
     Indication: TESTICULAR GERM CELL TUMOUR
     Dosage: 8 MG/M2 DAILY;
     Route: 041
     Dates: start: 20161114, end: 20161115
  10. TAZOCILLINE [Suspect]
     Active Substance: PIPERACILLIN SODIUM\TAZOBACTAM SODIUM
     Indication: INFECTION
     Dates: start: 20161122, end: 20161128
  11. ETOPOSIDE TEVA [Suspect]
     Active Substance: ETOPOSIDE
     Indication: TESTICULAR GERM CELL TUMOUR
     Dosage: 400 MG/M2 DAILY;
     Route: 041
     Dates: start: 20161114, end: 20161116
  12. ZOPHREN [Concomitant]
     Active Substance: ONDANSETRON
     Dates: start: 20161114, end: 20161123

REACTIONS (2)
  - Renal tubular disorder [Recovered/Resolved with Sequelae]
  - Acute kidney injury [Recovered/Resolved with Sequelae]

NARRATIVE: CASE EVENT DATE: 20161126
